FAERS Safety Report 4526012-5 (Version None)
Quarter: 2004Q4

REPORT INFORMATION
  Report Type: 
  Country: None (occurrence: None)
  Receive Date: 20041129
  Receipt Date: 20040921
  Transmission Date: 20050328
  Serious: Yes (Death, Hospitalization)
  Sender: FDA-Public Use
  Company Number: USA040978800

PATIENT
  Sex: Male

DRUGS (6)
  1. ZYPREXA [Suspect]
     Dosage: 20 MG
  2. PROZAC [Suspect]
     Dosage: 40 MG
  3. TRILAFON [Concomitant]
  4. KLONOPIN [Concomitant]
  5. FOSAMAX [Concomitant]
  6. GEODON [Concomitant]

REACTIONS (2)
  - HOSPITALISATION [None]
  - INTENTIONAL OVERDOSE [None]
